FAERS Safety Report 8128898-4 (Version None)
Quarter: 2012Q1

REPORT INFORMATION
  Report Type: 
  Country: None (occurrence: None)
  Receive Date: 20120210
  Receipt Date: 20110428
  Transmission Date: 20120608
  Serious: No
  Sender: FDA-Public Use
  Company Number: US-BRISTOL-MYERS SQUIBB COMPANY-15712714

PATIENT
  Age: 51 Year
  Sex: Female
  Weight: 54 kg

DRUGS (4)
  1. ORENCIA [Suspect]
     Dosage: LAST INFUSION ON 14APR2011
     Dates: start: 20110331
  2. CELEBREX [Concomitant]
  3. DOXYCYCLINE [Concomitant]
  4. CORTISONE ACETATE [Concomitant]

REACTIONS (1)
  - DYSPEPSIA [None]
